FAERS Safety Report 7766331-2 (Version None)
Quarter: 2011Q3

REPORT INFORMATION
  Report Type: 
  Country: None (occurrence: None)
  Receive Date: 20110922
  Receipt Date: 20110915
  Transmission Date: 20111222
  Serious: No
  Sender: FDA-Public Use
  Company Number: US-BIOGENIDEC-2011BI012584

PATIENT
  Sex: Female

DRUGS (3)
  1. AVONEX [Concomitant]
     Indication: MULTIPLE SCLEROSIS
     Route: 030
     Dates: start: 20041006
  2. TYSABRI [Suspect]
     Route: 042
     Dates: start: 20100405, end: 20100405
  3. TYSABRI [Suspect]
     Indication: MULTIPLE SCLEROSIS
     Route: 042
     Dates: start: 20110307

REACTIONS (11)
  - TREMOR [None]
  - BALANCE DISORDER [None]
  - MEMORY IMPAIRMENT [None]
  - FEELING ABNORMAL [None]
  - MULTIPLE SCLEROSIS RELAPSE [None]
  - SCOLIOSIS [None]
  - MENTAL IMPAIRMENT [None]
  - TENSION [None]
  - MUSCLE SPASMS [None]
  - FALL [None]
  - FATIGUE [None]
